FAERS Safety Report 12538095 (Version 1)
Quarter: 2016Q3

REPORT INFORMATION
  Report Type: Spontaneous
  Country: AU (occurrence: AU)
  Receive Date: 20160707
  Receipt Date: 20160707
  Transmission Date: 20161109
  Serious: Yes (Death, Life-Threatening)
  Sender: FDA-Public Use
  Company Number: AU-BAUSCH-BL-2016-016175

PATIENT
  Age: 26 Year
  Sex: Male

DRUGS (8)
  1. TOBRAMYCIN. [Suspect]
     Active Substance: TOBRAMYCIN
     Indication: RESPIRATORY TRACT INFECTION
     Route: 042
  2. VANCOMYCIN [Suspect]
     Active Substance: VANCOMYCIN
     Indication: RESPIRATORY TRACT INFECTION
     Route: 065
  3. PIPERACILLIN AND TAZOBACTAM [Suspect]
     Active Substance: PIPERACILLIN SODIUM\TAZOBACTAM SODIUM
     Indication: RESPIRATORY TRACT INFECTION
     Dosage: 12 G OF PIPERACILLIN COMPONENT/24 H
     Route: 041
  4. TRIMETHOPRIM 1600MG, SULFAMETHOXAZOLE 320MG [Suspect]
     Active Substance: SULFAMETHOXAZOLE\TRIMETHOPRIM
     Indication: RESPIRATORY TRACT INFECTION
     Route: 042
     Dates: start: 2013
  5. IMIPENEM [Suspect]
     Active Substance: IMIPENEM
     Indication: RESPIRATORY TRACT INFECTION
     Route: 042
     Dates: start: 2013
  6. CASPOFUNGIN [Suspect]
     Active Substance: CASPOFUNGIN
     Indication: RESPIRATORY TRACT INFECTION
     Route: 065
  7. CASPOFUNGIN [Suspect]
     Active Substance: CASPOFUNGIN
     Route: 065
  8. AZITHROMYCIN ANHYDROUS. [Suspect]
     Active Substance: AZITHROMYCIN ANHYDROUS
     Indication: RESPIRATORY TRACT INFECTION
     Route: 048

REACTIONS (1)
  - Treatment failure [Unknown]
